FAERS Safety Report 8397924-X (Version None)
Quarter: 2012Q2

REPORT INFORMATION
  Report Type: 
  Country: None (occurrence: None)
  Receive Date: 20120531
  Receipt Date: 20120525
  Transmission Date: 20120825
  Serious: Yes (Other)
  Sender: FDA-Public Use
  Company Number: PHHY2012BR045575

PATIENT
  Sex: Female
  Weight: 170 kg

DRUGS (11)
  1. DIOVAN [Suspect]
     Dosage: 320 MG, UNK
     Route: 048
  2. ATENSINE [Concomitant]
     Indication: BLOOD CHOLESTEROL INCREASED
  3. CALMAPAX [Concomitant]
  4. INSULIN [Concomitant]
  5. LASIX [Concomitant]
     Indication: HYPERTENSION
  6. ALDOMET [Concomitant]
     Indication: HYPERTENSION
  7. LOSARTAN POTASSIUM [Concomitant]
     Indication: HYPERTENSION
  8. EXFORGE [Suspect]
     Indication: HYPERTENSION
  9. METFORMIN HCL [Concomitant]
     Dosage: UNK
  10. ATENOLOL [Concomitant]
     Indication: HYPERTENSION
  11. DIOVAN [Suspect]
     Indication: HYPERTENSION
     Dosage: UNK

REACTIONS (15)
  - JOINT SWELLING [None]
  - MALAISE [None]
  - PRURITUS [None]
  - RASH [None]
  - BLOOD GLUCOSE INCREASED [None]
  - WEIGHT DECREASED [None]
  - PYREXIA [None]
  - SOMNOLENCE [None]
  - OEDEMA PERIPHERAL [None]
  - FATIGUE [None]
  - CHILLS [None]
  - SENSATION OF HEAVINESS [None]
  - URTICARIA [None]
  - BLOOD PRESSURE INCREASED [None]
  - INSOMNIA [None]
